FAERS Safety Report 21536328 (Version 1)
Quarter: 2022Q4

REPORT INFORMATION
  Report Type: Spontaneous
  Country: US (occurrence: US)
  Receive Date: 20221101
  Receipt Date: 20221101
  Transmission Date: 20230113
  Serious: No
  Sender: FDA-Public Use
  Company Number: US-TEVA-2022-US-2821038

PATIENT
  Sex: Female

DRUGS (1)
  1. ESTRACE [Suspect]
     Active Substance: ESTRADIOL
     Indication: Product used for unknown indication
     Route: 065

REACTIONS (2)
  - Drug ineffective [Unknown]
  - Hypertrichosis [Unknown]
